FAERS Safety Report 15007662 (Version 1)
Quarter: 2018Q2

REPORT INFORMATION
  Report Type: Spontaneous
  Country: NL (occurrence: NL)
  Receive Date: 20180613
  Receipt Date: 20180613
  Transmission Date: 20180711
  Serious: Yes (Hospitalization, Other)
  Sender: FDA-Public Use
  Company Number: NL-TEVA-2018-NL-906785

PATIENT
  Age: 60 Year
  Sex: Female
  Weight: 54 kg

DRUGS (2)
  1. CLOMIPRAMINE TABLET OMHULD 25MG OMHULDE TABLET, 25 MG (MILLIGRAM) [Suspect]
     Active Substance: CLOMIPRAMINE
     Indication: ANXIETY DISORDER
     Dosage: 25 MILLIGRAM DAILY; DAY 1: 1DD1 TABLET, DAY2: 2DD1 TABLET
     Route: 065
     Dates: start: 20180411, end: 20180412
  2. CLOMIPRAMINE TABLET OMHULD 25MG OMHULDE TABLET, 25 MG (MILLIGRAM) [Suspect]
     Active Substance: CLOMIPRAMINE
     Dosage: DAG 1: 1DD1 TABLET, DAG2: 2DD1 TABLETTEN
     Dates: start: 20180412, end: 20180413

REACTIONS (1)
  - Hyponatraemia [Recovering/Resolving]

NARRATIVE: CASE EVENT DATE: 20180413
